FAERS Safety Report 5845599-3 (Version None)
Quarter: 2008Q3

REPORT INFORMATION
  Report Type: 
  Country: None (occurrence: None)
  Receive Date: 20080814
  Receipt Date: 20080806
  Transmission Date: 20090109
  Serious: Yes (Hospitalization)
  Sender: FDA-Public Use
  Company Number: NL-WYE-H05390508

PATIENT
  Sex: Male
  Weight: 110 kg

DRUGS (1)
  1. SIROLIMUS [Suspect]
     Indication: PROPHYLAXIS AGAINST TRANSPLANT REJECTION
     Route: 048
     Dates: start: 20080515, end: 20080525

REACTIONS (2)
  - HAEMODIALYSIS [None]
  - RENAL FAILURE [None]
